FAERS Safety Report 4883170-0 (Version None)
Quarter: 2006Q1

REPORT INFORMATION
  Report Type: 
  Country: None (occurrence: None)
  Receive Date: 20060117
  Receipt Date: 20060117
  Transmission Date: 20060701
  Serious: Yes (Other)
  Sender: FDA-Public Use
  Company Number: None

PATIENT
  Age: 83 Year
  Sex: Female
  Weight: 65.7716 kg

DRUGS (1)
  1. ARESTIN [Suspect]
     Indication: PERIODONTAL DISEASE
     Dosage: 1 MG  ONCE   DENTAL
     Route: 004
     Dates: start: 20051206, end: 20051206

REACTIONS (5)
  - ERYTHEMA [None]
  - IMPAIRED HEALING [None]
  - PERIODONTAL DISEASE [None]
  - WOUND DEHISCENCE [None]
  - WOUND DRAINAGE [None]
